FAERS Safety Report 9383437 (Version 1)
Quarter: 2013Q3

REPORT INFORMATION
  Report Type: Spontaneous
  Country: US (occurrence: US)
  Receive Date: 20130704
  Receipt Date: 20130704
  Transmission Date: 20140515
  Serious: No
  Sender: FDA-Public Use
  Company Number: US-009507513-1306USA010184

PATIENT
  Sex: Female

DRUGS (1)
  1. AZASITE [Suspect]
     Indication: MEIBOMIAN GLAND DYSFUNCTION
     Dosage: 2 DF, QD
     Route: 031

REACTIONS (3)
  - Ocular discomfort [Unknown]
  - Drug dose omission [Unknown]
  - Product packaging quantity issue [Unknown]
